FAERS Safety Report 15946059 (Version 1)
Quarter: 2019Q1

REPORT INFORMATION
  Report Type: Spontaneous
  Country: DK (occurrence: DK)
  Receive Date: 20190211
  Receipt Date: 20190211
  Transmission Date: 20190417
  Serious: Yes (Hospitalization)
  Sender: FDA-Public Use
  Company Number: DK-BAUSCH-BL-2019-003656

PATIENT
  Age: 69 Year
  Sex: Female

DRUGS (1)
  1. ALDARA [Suspect]
     Active Substance: IMIQUIMOD
     Indication: ACTINIC KERATOSIS
     Dosage: 1 APPLICATION ON THE MONDAY, WEDNESDAY AND FRIDAY NIGHT FOR 4 WEEKS.
     Route: 003
     Dates: start: 201611, end: 201701

REACTIONS (4)
  - Drain site complication [Recovered/Resolved]
  - Skin wound [Recovered/Resolved]
  - Pyrexia [Recovered/Resolved]
  - Cellulitis orbital [Recovered/Resolved]

NARRATIVE: CASE EVENT DATE: 201701
